FAERS Safety Report 16227261 (Version 2)
Quarter: 2020Q1

REPORT INFORMATION
  Report Type: Report from Study
  Country: DE (occurrence: DE)
  Receive Date: 20190423
  Receipt Date: 20200206
  Transmission Date: 20200409
  Serious: No
  Sender: FDA-Public Use
  Company Number: DE-ROCHE-2305535

PATIENT
  Age: 53 Year
  Sex: Female

DRUGS (9)
  1. RANITIDINE. [Concomitant]
     Active Substance: RANITIDINE
     Route: 048
     Dates: start: 20180725, end: 20180726
  2. OCRELIZUMAB. [Suspect]
     Active Substance: OCRELIZUMAB
     Route: 042
     Dates: start: 20180726
  3. FENISTIL [Concomitant]
     Active Substance: DIMETHINDENE
     Route: 048
     Dates: start: 20180711, end: 20180712
  4. GABAPENTIN. [Concomitant]
     Active Substance: GABAPENTIN
     Indication: PAIN
     Dosage: ONGOING
     Route: 048
     Dates: start: 20140429
  5. PREDNISOLONE. [Concomitant]
     Active Substance: PREDNISOLONE
     Route: 048
     Dates: start: 20180712, end: 20180726
  6. BACLOFEN. [Concomitant]
     Active Substance: BACLOFEN
     Indication: MUSCLE SPASTICITY
     Dosage: ONGOING
     Route: 048
     Dates: start: 20150615
  7. FENISTIL [Concomitant]
     Active Substance: DIMETHINDENE
     Route: 048
     Dates: start: 20180725, end: 20180726
  8. OCRELIZUMAB. [Suspect]
     Active Substance: OCRELIZUMAB
     Indication: MULTIPLE SCLEROSIS
     Route: 042
     Dates: start: 20180712
  9. RANITIDINE. [Concomitant]
     Active Substance: RANITIDINE
     Route: 048
     Dates: start: 20180711, end: 20180712

REACTIONS (1)
  - Furuncle [Recovered/Resolved]

NARRATIVE: CASE EVENT DATE: 201901
